FAERS Safety Report 4631222-2 (Version None)
Quarter: 2005Q2

REPORT INFORMATION
  Report Type: 
  Country: None (occurrence: None)
  Receive Date: 20050407
  Receipt Date: 20050407
  Transmission Date: 20051028
  Serious: Yes (Other)
  Sender: FDA-Public Use
  Company Number: None

PATIENT
  Sex: Male

DRUGS (3)
  1. ADVAIR DISKUS 100/50 [Suspect]
     Indication: UPPER RESPIRATORY TRACT INFECTION
     Dosage: INHALED
     Route: 055
     Dates: start: 20050405
  2. PREVACID [Concomitant]
  3. ASPIRIN [Concomitant]

REACTIONS (1)
  - ANGIONEUROTIC OEDEMA [None]
